FAERS Safety Report 20859535 (Version 6)
Quarter: 2022Q4

REPORT INFORMATION
  Report Type: Other
  Country: JP (occurrence: JP)
  Receive Date: 20220523
  Receipt Date: 20221228
  Transmission Date: 20230113
  Serious: Yes (Hospitalization)
  Sender: FDA-Public Use
  Company Number: JP-CHUGAI-2022017503

PATIENT
  Age: 63 Year
  Sex: Female
  Weight: 40.3 kg

DRUGS (13)
  1. ATEZOLIZUMAB [Suspect]
     Active Substance: ATEZOLIZUMAB
     Indication: Lung adenocarcinoma
     Dosage: 1200 MILLIGRAM, QD
     Route: 041
     Dates: start: 20211206, end: 20211206
  2. BEVACIZUMAB [Suspect]
     Active Substance: BEVACIZUMAB
     Indication: Lung adenocarcinoma
     Dosage: 604 MILLIGRAM
     Route: 041
     Dates: start: 20211206
  3. BEVACIZUMAB [Suspect]
     Active Substance: BEVACIZUMAB
     Dosage: 555 MILLIGRAM, ONCE/3WEEKS
     Route: 041
     Dates: start: 20220207, end: 20220323
  4. BEVACIZUMAB [Suspect]
     Active Substance: BEVACIZUMAB
     Dosage: 555 MILLIGRAM, ONCE/3WEEKS
     Route: 041
     Dates: start: 20220509
  5. BEVACIZUMAB [Suspect]
     Active Substance: BEVACIZUMAB
     Dosage: 628 MILLIGRAM
     Route: 041
     Dates: start: 20220801
  6. CARBOPLATIN [Concomitant]
     Active Substance: CARBOPLATIN
     Indication: Lung adenocarcinoma
     Dosage: 470 MILLIGRAM
     Route: 041
     Dates: start: 20211206
  7. CARBOPLATIN [Concomitant]
     Active Substance: CARBOPLATIN
     Dosage: 460 MILLIGRAM, ONCE/3WEEKS
     Route: 041
     Dates: start: 20220207, end: 20220323
  8. PACLITAXEL [Concomitant]
     Active Substance: PACLITAXEL
     Indication: Lung adenocarcinoma
     Dosage: 240 MILLIGRAM
     Route: 041
     Dates: start: 20211206
  9. PACLITAXEL [Concomitant]
     Active Substance: PACLITAXEL
     Dosage: 230 MILLIGRAM, ONCE/3WEEKS
     Route: 041
     Dates: start: 20220207, end: 20220323
  10. BEVACIZUMAB [Concomitant]
     Active Substance: BEVACIZUMAB
     Indication: Lung adenocarcinoma
     Route: 041
     Dates: start: 20211206
  11. BEVACIZUMAB [Concomitant]
     Active Substance: BEVACIZUMAB
     Route: 041
     Dates: start: 20220207, end: 20220323
  12. BEVACIZUMAB [Concomitant]
     Active Substance: BEVACIZUMAB
     Route: 041
     Dates: start: 20220509
  13. BEVACIZUMAB [Concomitant]
     Active Substance: BEVACIZUMAB
     Route: 041
     Dates: start: 20220801

REACTIONS (4)
  - Dermatomyositis [Recovering/Resolving]
  - Malaise [Recovered/Resolved]
  - Headache [Recovered/Resolved]
  - Weight decreased [Recovered/Resolved]

NARRATIVE: CASE EVENT DATE: 20211209
